FAERS Safety Report 8367262-X (Version None)
Quarter: 2012Q2

REPORT INFORMATION
  Report Type: 
  Country: None (occurrence: None)
  Receive Date: 20120517
  Receipt Date: 20120508
  Transmission Date: 20120825
  Serious: Yes (Other)
  Sender: FDA-Public Use
  Company Number: DE-BRISTOL-MYERS SQUIBB COMPANY-16598138

PATIENT
  Age: 39 Year
  Sex: Female

DRUGS (1)
  1. BARACLUDE [Suspect]

REACTIONS (5)
  - HAEMORRHAGE IN PREGNANCY [None]
  - GESTATIONAL DIABETES [None]
  - LIVE BIRTH [None]
  - PREMATURE LABOUR [None]
  - PREGNANCY [None]
